FAERS Safety Report 14277639 (Version 3)
Quarter: 2018Q1

REPORT INFORMATION
  Report Type: Spontaneous
  Country: JP (occurrence: JP)
  Receive Date: 20171212
  Receipt Date: 20180308
  Transmission Date: 20180508
  Serious: Yes (Other)
  Sender: FDA-Public Use
  Company Number: JP-JNJFOC-20171211829

PATIENT
  Age: 77 Year
  Sex: Male

DRUGS (15)
  1. ROZEREM [Concomitant]
     Active Substance: RAMELTEON
     Route: 048
  2. PURSENNID [Concomitant]
     Active Substance: SENNOSIDES A AND B
     Route: 048
  3. SEPAMIT-R [Concomitant]
     Active Substance: NIFEDIPINE
     Route: 048
  4. OLMETEC [Concomitant]
     Active Substance: OLMESARTAN MEDOXOMIL
     Route: 048
  5. LANSOPRAZOLE. [Concomitant]
     Active Substance: LANSOPRAZOLE
     Route: 048
  6. SODIUM CHLORIDE. [Concomitant]
     Active Substance: SODIUM CHLORIDE
     Route: 065
  7. AMBROXOL HYDROCHLORIDE [Concomitant]
     Active Substance: AMBROXOL HYDROCHLORIDE
     Route: 048
  8. DIGOSIN [Concomitant]
     Active Substance: DIGOXIN
     Route: 065
  9. ALDACTONE A [Concomitant]
     Active Substance: SPIRONOLACTONE
     Route: 048
  10. SAMSCA [Concomitant]
     Active Substance: TOLVAPTAN
     Route: 048
  11. BELSOMRA [Concomitant]
     Active Substance: SUVOREXANT
     Route: 048
  12. RISPERDAL [Suspect]
     Active Substance: RISPERIDONE
     Indication: PRODUCT USED FOR UNKNOWN INDICATION
     Route: 048
  13. CARDENALIN [Concomitant]
     Active Substance: DOXAZOSIN MESYLATE
     Route: 048
  14. LASIX [Concomitant]
     Active Substance: FUROSEMIDE
     Route: 048
  15. ZALUTIA [Concomitant]
     Active Substance: TADALAFIL
     Route: 048

REACTIONS (1)
  - Interstitial lung disease [Recovered/Resolved]

NARRATIVE: CASE EVENT DATE: 20171031
